FAERS Safety Report 16058049 (Version 1)
Quarter: 2019Q1

REPORT INFORMATION
  Report Type: Spontaneous
  Country: CN (occurrence: CN)
  Receive Date: 20190311
  Receipt Date: 20190311
  Transmission Date: 20190418
  Serious: Yes (Death, Life-Threatening, Other)
  Sender: FDA-Public Use
  Company Number: CN-PFIZER INC-2019105754

PATIENT
  Age: 82 Year
  Sex: Male
  Weight: 70 kg

DRUGS (2)
  1. ZYVOX [Suspect]
     Active Substance: LINEZOLID
     Indication: PNEUMONIA
     Dosage: 600 MG, 2X/DAY
     Route: 041
     Dates: start: 20190111, end: 20190118
  2. MEPEM [MEROPENEM] [Suspect]
     Active Substance: MEROPENEM
     Indication: PNEUMONIA
     Dosage: 1 G, 3X/DAY
     Route: 041
     Dates: start: 20190109, end: 20190125

REACTIONS (3)
  - Platelet count decreased [Not Recovered/Not Resolved]
  - Haemorrhage [Unknown]
  - Melaena [Unknown]

NARRATIVE: CASE EVENT DATE: 20190118
